FAERS Safety Report 23338906 (Version 1)
Quarter: 2023Q4

REPORT INFORMATION
  Report Type: Spontaneous
  Country: US (occurrence: US)
  Receive Date: 20231226
  Receipt Date: 20231226
  Transmission Date: 20240110
  Serious: Yes (Other)
  Sender: FDA-Public Use
  Company Number: US-BRISTOL-MYERS SQUIBB COMPANY-2023-184970

PATIENT

DRUGS (3)
  1. NIVOLUMAB [Suspect]
     Active Substance: NIVOLUMAB
     Indication: Papillary thyroid cancer
  2. IPILIMUMAB [Suspect]
     Active Substance: IPILIMUMAB
     Indication: Papillary thyroid cancer
  3. CABOZANTINIB [Suspect]
     Active Substance: CABOZANTINIB
     Indication: Poorly differentiated thyroid carcinoma

REACTIONS (2)
  - Myocarditis [Unknown]
  - Off label use [Unknown]
